FAERS Safety Report 13266682 (Version 1)
Quarter: 2017Q1

REPORT INFORMATION
  Report Type: Spontaneous
  Country: DE (occurrence: DE)
  Receive Date: 20170223
  Receipt Date: 20170223
  Transmission Date: 20170428
  Serious: Yes (Hospitalization, Other)
  Sender: FDA-Public Use
  Company Number: DE-AMGEN-DEUSP2017028280

PATIENT
  Sex: Male

DRUGS (3)
  1. IMLYGIC [Suspect]
     Active Substance: TALIMOGENE LAHERPAREPVEC
     Indication: MALIGNANT MELANOMA STAGE III
     Dosage: 4 ML, UNK
     Route: 065
  2. IMLYGIC [Suspect]
     Active Substance: TALIMOGENE LAHERPAREPVEC
     Indication: METASTASES TO LYMPH NODES
  3. IMLYGIC [Suspect]
     Active Substance: TALIMOGENE LAHERPAREPVEC
     Indication: METASTASES TO SKIN

REACTIONS (6)
  - Lymph node haemorrhage [Unknown]
  - Vertigo [Recovered/Resolved]
  - Lymphadenopathy [Unknown]
  - Tumour necrosis [Unknown]
  - Injection site haemorrhage [Unknown]
  - Adverse drug reaction [Unknown]
